FAERS Safety Report 5907071-1 (Version None)
Quarter: 2008Q4

REPORT INFORMATION
  Report Type: 
  Country: None (occurrence: None)
  Receive Date: 20081002
  Receipt Date: 20081002
  Transmission Date: 20090506
  Serious: No
  Sender: FDA-Public Use
  Company Number: None

PATIENT
  Age: 24 Year
  Sex: Female
  Weight: 60.3284 kg

DRUGS (4)
  1. SERTRALINE [Suspect]
     Indication: ANXIETY
     Dosage: 25MG ONCE/DAY PO
     Route: 048
     Dates: start: 20080423, end: 20080801
  2. SERTRALINE [Suspect]
     Indication: PANIC ATTACK
     Dosage: 50MG ONCE/DAY PO
     Route: 048
  3. DESOGESTREL AND ETHINYL ESTRADIOL [Concomitant]
  4. ALBUTEROL [Concomitant]

REACTIONS (17)
  - ABNORMAL BEHAVIOUR [None]
  - ANGER [None]
  - ANOREXIA [None]
  - ANXIETY [None]
  - APATHY [None]
  - BLINDNESS [None]
  - DIZZINESS [None]
  - DRUG DOSE OMISSION [None]
  - ENERGY INCREASED [None]
  - FEELING ABNORMAL [None]
  - HYPERHIDROSIS [None]
  - HYPOMANIA [None]
  - LETHARGY [None]
  - LIBIDO DECREASED [None]
  - MEMORY IMPAIRMENT [None]
  - PANIC ATTACK [None]
  - PARAESTHESIA [None]
